FAERS Safety Report 8113619-1 (Version None)
Quarter: 2012Q1

REPORT INFORMATION
  Report Type: 
  Country: None (occurrence: None)
  Receive Date: 20120203
  Receipt Date: 20120201
  Transmission Date: 20120608
  Serious: Yes (Life-Threatening, Hospitalization, Other)
  Sender: FDA-Public Use
  Company Number: CA-PURDUE-CAN-2012-0002594

PATIENT
  Sex: Male

DRUGS (2)
  1. OXYCONTIN [Suspect]
     Indication: PRODUCT USED FOR UNKNOWN INDICATION
     Dosage: 5 MG, DAILY
     Route: 065
  2. OXYCONTIN [Suspect]
     Dosage: 5 MG, Q3- 4H
     Route: 065

REACTIONS (11)
  - DRUG ABUSE [None]
  - DRUG WITHDRAWAL SYNDROME [None]
  - MIOSIS [None]
  - PAIN [None]
  - ACCIDENT AT WORK [None]
  - PARANOIA [None]
  - AFFECT LABILITY [None]
  - EUPHORIC MOOD [None]
  - DISTURBANCE IN ATTENTION [None]
  - DRUG DEPENDENCE [None]
  - AGITATION [None]
